FAERS Safety Report 23207701 (Version 1)
Quarter: 2023Q4

REPORT INFORMATION
  Report Type: Spontaneous
  Country: US (occurrence: US)
  Receive Date: 20231120
  Receipt Date: 20231120
  Transmission Date: 20240109
  Serious: No
  Sender: FDA-Public Use
  Company Number: US-drreddys-SPO/USA/23/0181087

PATIENT
  Age: 32 Year
  Sex: Female

DRUGS (1)
  1. ACCUTANE [Suspect]
     Active Substance: ISOTRETINOIN
     Indication: Acne
     Dosage: RMA ISSUE DATE: 26 JULY 2023 11:30:12 AM, 21 AUGUST 2023 01:49:34 PM, 27 SEPTEMBER 2023 08:51:38 AM

REACTIONS (2)
  - Migraine with aura [Unknown]
  - Condition aggravated [Unknown]
